FAERS Safety Report 6701765-6 (Version None)
Quarter: 2010Q2

REPORT INFORMATION
  Report Type: 
  Country: None (occurrence: None)
  Receive Date: 20100429
  Receipt Date: 20100421
  Transmission Date: 20101027
  Serious: Yes (Hospitalization)
  Sender: FDA-Public Use
  Company Number: US-ABBOTT-10P-163-0640548-00

PATIENT
  Sex: Male
  Weight: 91.708 kg

DRUGS (6)
  1. NIASPAN [Suspect]
     Indication: CHEST DISCOMFORT
     Dates: start: 20060101
  2. NIASPAN [Suspect]
     Indication: BLOOD CHOLESTEROL INCREASED
  3. SIMVASTATIN [Concomitant]
     Indication: DRUG USE FOR UNKNOWN INDICATION
  4. ASPIRIN [Concomitant]
     Indication: DRUG USE FOR UNKNOWN INDICATION
  5. PANTOPRAZOLE [Concomitant]
     Indication: DRUG USE FOR UNKNOWN INDICATION
  6. LISINOPRIL [Concomitant]
     Indication: HYPERTENSION

REACTIONS (4)
  - ARTERIAL THERAPEUTIC PROCEDURE [None]
  - CATARACT [None]
  - CHEST PAIN [None]
  - FLUSHING [None]
